FAERS Safety Report 9994755 (Version 1)
Quarter: 2014Q1

REPORT INFORMATION
  Report Type: Spontaneous
  Country: GB (occurrence: None)
  Receive Date: 20140306
  Receipt Date: 20140306
  Transmission Date: 20141002
  Serious: Yes (Other)
  Sender: FDA-Public Use
  Company Number: 2014AP001629

PATIENT
  Sex: Female

DRUGS (10)
  1. OMEPRAZOLE [Suspect]
     Indication: PRODUCT USED FOR UNKNOWN INDICATION
     Route: 048
  2. ZOMIG [Suspect]
     Indication: MIGRAINE
     Route: 048
  3. DIAZEPAM (DIAZEPAM) [Suspect]
     Indication: PRODUCT USED FOR UNKNOWN INDICATION
  4. PARACETAMOL (PARACETAMOL) [Suspect]
     Indication: PRODUCT USED FOR UNKNOWN INDICATION
  5. LORAZEPAM (LORAZEPAM) [Suspect]
     Indication: PRODUCT USED FOR UNKNOWN INDICATION
  6. PREDNISOLONE (PREDNISOLONE) [Suspect]
     Indication: PRODUCT USED FOR UNKNOWN INDICATION
  7. DEXAMETHASONE (DEXAMETHASONE) [Suspect]
     Indication: PRODUCT USED FOR UNKNOWN INDICATION
  8. METOCLOPRAMIDE (METOCLOPRAMIDE) [Suspect]
     Indication: PRODUCT USED FOR UNKNOWN INDICATION
  9. IBUPROFEN (IBUPROFEN) [Suspect]
     Indication: PRODUCT USED FOR UNKNOWN INDICATION
  10. MULTIVITAMINS [Suspect]
     Indication: PRODUCT USED FOR UNKNOWN INDICATION

REACTIONS (2)
  - Drug interaction [None]
  - Breast cancer [None]
